FAERS Safety Report 6576570-4 (Version None)
Quarter: 2010Q1

REPORT INFORMATION
  Report Type: 
  Country: None (occurrence: None)
  Receive Date: 20100210
  Receipt Date: 20100201
  Transmission Date: 20100710
  Serious: Yes (Other)
  Sender: FDA-Public Use
  Company Number: US-BAYER-201010700NA

PATIENT
  Age: 56 Year
  Sex: Male

DRUGS (2)
  1. BETASERON [Suspect]
     Indication: MULTIPLE SCLEROSIS
     Dosage: TOTAL DAILY DOSE: 8 MIU
     Route: 058
  2. BETASERON [Suspect]
     Dosage: TOTAL DAILY DOSE: 4 MIU
     Route: 058
     Dates: start: 20091213

REACTIONS (6)
  - ABASIA [None]
  - BLOOD PRESSURE INCREASED [None]
  - DIZZINESS [None]
  - INJECTION SITE HAEMORRHAGE [None]
  - MIGRAINE WITH AURA [None]
  - PHOTOPSIA [None]
